FAERS Safety Report 16511813 (Version 1)
Quarter: 2019Q3

REPORT INFORMATION
  Report Type: Spontaneous
  Country: US (occurrence: US)
  Receive Date: 20190701
  Receipt Date: 20190701
  Transmission Date: 20191004
  Serious: No
  Sender: FDA-Public Use
  Company Number: US-GALDERMA-US19007531

PATIENT
  Age: 16 Year
  Sex: Male

DRUGS (9)
  1. ALOE VERA LOTION [Concomitant]
     Indication: ERYTHEMA
  2. ALOE VERA LOTION [Concomitant]
     Indication: SKIN FISSURES
  3. ALOE VERA LOTION [Concomitant]
     Indication: SKIN EXFOLIATION
  4. PROACTIV MD DEEP CLEANSING FACE WASH [Concomitant]
     Active Substance: COSMETICS
     Route: 061
     Dates: start: 20190120, end: 20190125
  5. ALOE VERA LOTION [Concomitant]
     Indication: SKIN BURNING SENSATION
  6. ALOE VERA LOTION [Concomitant]
     Indication: RASH
  7. PROACTIV MD DAILY OIL CONTROL SPF 30 [Suspect]
     Active Substance: AVOBENZONE\OCTISALATE\OCTOCRYLENE
     Indication: PRODUCT USED FOR UNKNOWN INDICATION
     Route: 061
     Dates: start: 20190120, end: 20190125
  8. PROACTIV GREEN TEA MOISTURIZER [Concomitant]
     Active Substance: COSMETICS
     Route: 061
     Dates: start: 20190120, end: 20190125
  9. PROACTIV MD ADAPALENE ACNE TREATMENT [Suspect]
     Active Substance: ADAPALENE
     Indication: PRODUCT USED FOR UNKNOWN INDICATION
     Dosage: 0.1%
     Route: 061
     Dates: start: 20190120, end: 20190125

REACTIONS (7)
  - Skin exfoliation [Recovering/Resolving]
  - Rash [Recovering/Resolving]
  - Skin fissures [Recovering/Resolving]
  - Inappropriate schedule of product administration [Recovered/Resolved]
  - Overdose [Recovered/Resolved]
  - Erythema [Recovering/Resolving]
  - Skin burning sensation [Recovering/Resolving]

NARRATIVE: CASE EVENT DATE: 20190120
